FAERS Safety Report 4601690-0 (Version None)
Quarter: 2005Q1

REPORT INFORMATION
  Report Type: 
  Country: None (occurrence: None)
  Receive Date: 20050131
  Receipt Date: 20041105
  Transmission Date: 20050727
  Serious: Yes (Disabling, Other)
  Sender: FDA-Public Use
  Company Number: 200418581US

PATIENT
  Age: 15 Year
  Sex: Female

DRUGS (3)
  1. KETEK [Suspect]
     Indication: ACUTE SINUSITIS
     Dosage: 400 2 TABLETS MG QD
     Dates: start: 20041022, end: 20041029
  2. OMNICEF [Concomitant]
  3. PREDNISONE [Concomitant]

REACTIONS (1)
  - DIPLOPIA [None]
